FAERS Safety Report 15721451 (Version 1)
Quarter: 2018Q4

REPORT INFORMATION
  Report Type: Spontaneous
  Country: DE (occurrence: DE)
  Receive Date: 20181214
  Receipt Date: 20181214
  Transmission Date: 20190205
  Serious: Yes (Other)
  Sender: FDA-Public Use
  Company Number: DE-009507513-1812DEU004968

PATIENT
  Age: 37 Year
  Sex: Female
  Weight: 64 kg

DRUGS (4)
  1. DIHYDERGOT (DIHYDROERGOTAMINE MESYLATE) [Suspect]
     Active Substance: DIHYDROERGOTAMINE MESYLATE
     Indication: MIGRAINE
     Dosage: 0.5 TO 1 DF/PRN
     Route: 030
     Dates: start: 1997
  2. MAXALT [Suspect]
     Active Substance: RIZATRIPTAN BENZOATE
     Indication: MIGRAINE
     Dosage: 1 DF, PRN
     Route: 048
     Dates: start: 1999
  3. DICLOFENAC [Suspect]
     Active Substance: DICLOFENAC
     Indication: SURGERY
     Dosage: 200 MG, PRN
     Route: 048
     Dates: start: 1999, end: 2001
  4. DET MS [Concomitant]
     Dosage: UNK
     Dates: start: 2000, end: 2002

REACTIONS (3)
  - Vomiting [Unknown]
  - Colitis ulcerative [Unknown]
  - Nausea [Unknown]

NARRATIVE: CASE EVENT DATE: 200209
